FAERS Safety Report 8591397-X (Version None)
Quarter: 2012Q3

REPORT INFORMATION
  Report Type: 
  Country: None (occurrence: None)
  Receive Date: 20120801
  Receipt Date: 20120723
  Transmission Date: 20120928
  Serious: Yes (Hospitalization, Other)
  Sender: FDA-Public Use
  Company Number: ADR-2012-01377

PATIENT
  Sex: Female

DRUGS (2)
  1. LIORESAL [Suspect]
     Indication: MUSCLE SPASTICITY
     Dosage: 96 MCG/DAY/INTRATHECAL
     Route: 037
  2. LIORESAL [Suspect]
     Indication: CEREBRAL PALSY
     Dosage: 96 MCG/DAY/INTRATHECAL
     Route: 037

REACTIONS (5)
  - MALAISE [None]
  - INFECTED SKIN ULCER [None]
  - WOUND SEPSIS [None]
  - MUSCLE SPASMS [None]
  - HYPOTONIA [None]
